FAERS Safety Report 9107210 (Version 1)
Quarter: 2013Q1

REPORT INFORMATION
  Report Type: Spontaneous
  Country: CH (occurrence: CH)
  Receive Date: 20130221
  Receipt Date: 20130221
  Transmission Date: 20140127
  Serious: Yes (Other)
  Sender: FDA-Public Use
  Company Number: CH-JNJFOC-20130206595

PATIENT
  Age: 49 Year
  Sex: Male

DRUGS (7)
  1. SPORANOX [Suspect]
     Indication: TRICHOPHYTIC GRANULOMA
     Route: 048
  2. SPORANOX [Suspect]
     Indication: TRICHOPHYTIC GRANULOMA
     Route: 048
  3. SPORANOX [Suspect]
     Indication: TRICHOPHYTIC GRANULOMA
     Route: 042
  4. ITRACONAZOLE [Suspect]
     Indication: TRICHOPHYTIC GRANULOMA
     Route: 048
  5. TACROLIMUS [Interacting]
     Indication: IMMUNOSUPPRESSION
     Route: 065
  6. PREDNISONE [Suspect]
     Indication: IMMUNOSUPPRESSION
     Route: 065
  7. AZATHIOPRINE [Suspect]
     Indication: IMMUNOSUPPRESSION
     Route: 065

REACTIONS (3)
  - Trichophytic granuloma [Unknown]
  - Drug interaction [Unknown]
  - Staphylococcal sepsis [Unknown]
